FAERS Safety Report 4718980-3 (Version None)
Quarter: 2005Q3

REPORT INFORMATION
  Report Type: 
  Country: None (occurrence: None)
  Receive Date: 20050720
  Receipt Date: 20040213
  Transmission Date: 20060218
  Serious: Yes (Hospitalization)
  Sender: FDA-Public Use
  Company Number: GB-MERCK-0402GBR00160

PATIENT
  Age: 46 Year
  Sex: Female

DRUGS (9)
  1. FOSAMAX [Suspect]
     Indication: OSTEOPOROSIS
     Route: 048
     Dates: start: 20020901, end: 20021001
  2. THEOPHYLLINE [Suspect]
     Indication: ASTHMA
     Route: 065
     Dates: start: 19950101
  3. ESTROGENS (UNSPECIFIED) [Concomitant]
     Route: 065
  4. IPRATROPIUM BROMIDE [Concomitant]
     Route: 055
  5. ALBUTEROL SULFATE [Concomitant]
     Route: 055
  6. FLUTICASONE PROPIONATE [Concomitant]
     Route: 055
  7. SALMETEROL XINAFOATE [Concomitant]
     Route: 055
  8. PREDNISOLONE [Concomitant]
     Route: 065
  9. RISEDRONATE SODIUM [Suspect]
     Indication: OSTEOPOROSIS
     Route: 065
     Dates: start: 20030101, end: 20031101

REACTIONS (6)
  - CONVULSION [None]
  - DRUG INTERACTION [None]
  - DRUG TOXICITY [None]
  - HEADACHE [None]
  - THERAPEUTIC AGENT TOXICITY [None]
  - VOMITING [None]
